FAERS Safety Report 17992121 (Version 2)
Quarter: 2020Q3

REPORT INFORMATION
  Report Type: Report from Study
  Country: GB (occurrence: GB)
  Receive Date: 20200708
  Receipt Date: 20200718
  Transmission Date: 20201103
  Serious: Yes (Other)
  Sender: FDA-Public Use
  Company Number: GB-AUROBINDO-AUR-APL-2020-032300

PATIENT
  Age: 60 Year
  Sex: Female

DRUGS (7)
  1. ACICLOVIR [Suspect]
     Active Substance: ACYCLOVIR
     Indication: ANTIVIRAL PROPHYLAXIS
     Dosage: 400 MILLIGRAM, TWO TIMES A DAY
     Route: 048
  2. FOSCARNET [Suspect]
     Active Substance: FOSCARNET
     Indication: HERPES SIMPLEX
     Dosage: UNK
     Route: 065
  3. CYCLOSPORIN [Suspect]
     Active Substance: CYCLOSPORINE
     Indication: IMMUNOSUPPRESSANT DRUG THERAPY
  4. ALEMTUZUMAB [Suspect]
     Active Substance: ALEMTUZUMAB
     Indication: IMMUNOSUPPRESSANT DRUG THERAPY
     Dosage: UNK
     Route: 065
  5. FLUDARABINE [Suspect]
     Active Substance: FLUDARABINE PHOSPHATE
     Indication: IMMUNOSUPPRESSANT DRUG THERAPY
     Dosage: UNK
     Route: 065
  6. BUSULPHAN [Suspect]
     Active Substance: BUSULFAN
     Indication: IMMUNOSUPPRESSANT DRUG THERAPY
     Dosage: 3.2 MILLIGRAM/KILOGRAM
     Route: 065
  7. CYCLOSPORIN [Suspect]
     Active Substance: CYCLOSPORINE
     Indication: GRAFT VERSUS HOST DISEASE
     Dosage: 3 MILLIGRAM/KILOGRAM, ONCE A DAY
     Route: 042

REACTIONS (10)
  - Ulcer haemorrhage [Unknown]
  - Mycobacterium kansasii infection [Unknown]
  - Drug resistance [Unknown]
  - Mouth ulceration [Unknown]
  - Herpes simplex [Recovered/Resolved]
  - Skin lesion [Recovered/Resolved]
  - Renal impairment [Unknown]
  - Pneumonia [Unknown]
  - Pathogen resistance [Unknown]
  - Toxicity to various agents [Unknown]
